FAERS Safety Report 8271494-9 (Version None)
Quarter: 2012Q2

REPORT INFORMATION
  Report Type: 
  Country: None (occurrence: None)
  Receive Date: 20120410
  Receipt Date: 20120402
  Transmission Date: 20120825
  Serious: Yes (Hospitalization)
  Sender: FDA-Public Use
  Company Number: JP-TEVA-331756ISR

PATIENT
  Age: 64 Year
  Sex: Female

DRUGS (2)
  1. HYDROCORTISONE [Concomitant]
     Route: 042
  2. MEXILETINE HYDROCHLORIDE [Suspect]
     Route: 048

REACTIONS (2)
  - ARTHRITIS [None]
  - DRUG RASH WITH EOSINOPHILIA AND SYSTEMIC SYMPTOMS [None]
